FAERS Safety Report 4787222-5 (Version None)
Quarter: 2005Q4

REPORT INFORMATION
  Report Type: 
  Country: None (occurrence: None)
  Receive Date: 20051004
  Receipt Date: 20050923
  Transmission Date: 20060501
  Serious: Yes (Hospitalization)
  Sender: FDA-Public Use
  Company Number: US-MERCK-0509USA03913

PATIENT
  Age: 79 Year
  Sex: Female
  Weight: 102 kg

DRUGS (16)
  1. VIOXX [Suspect]
     Indication: ARTHRITIS
     Route: 048
     Dates: start: 19991201, end: 20001010
  2. VIOXX [Suspect]
     Route: 048
     Dates: start: 19991201, end: 20001010
  3. VIOXX [Suspect]
     Route: 048
     Dates: start: 19991201, end: 20001010
  4. PLAVIX [Concomitant]
     Route: 048
  5. AXID [Concomitant]
     Route: 048
  6. LASIX [Concomitant]
     Route: 048
  7. AMARYL [Concomitant]
     Route: 048
  8. FOSAMAX [Concomitant]
     Route: 048
  9. LORTAB [Concomitant]
     Route: 048
  10. PHENOBARBITAL (LILLY) [Concomitant]
     Route: 048
  11. COMBIVENT [Concomitant]
     Route: 055
  12. DARVOCET-N 100 [Concomitant]
     Route: 048
  13. VITAMINS (UNSPECIFIED) [Concomitant]
     Route: 048
  14. MILK OF MAGNESIA TAB [Concomitant]
     Route: 048
  15. SORBITOL [Concomitant]
     Route: 048
  16. SULAR [Concomitant]
     Route: 048

REACTIONS (18)
  - ARTHRALGIA [None]
  - ASTHENIA [None]
  - BLEPHARITIS [None]
  - BRONCHITIS [None]
  - CEREBROVASCULAR ACCIDENT [None]
  - DEPRESSION [None]
  - DRUG INEFFECTIVE [None]
  - EXTRAOCULAR MUSCLE PARESIS [None]
  - EYE DISORDER [None]
  - FALL [None]
  - FOOT FRACTURE [None]
  - INTERVERTEBRAL DISC DEGENERATION [None]
  - LIMB DISCOMFORT [None]
  - OEDEMA PERIPHERAL [None]
  - OSTEOPOROSIS [None]
  - PARAESTHESIA [None]
  - ROAD TRAFFIC ACCIDENT [None]
  - WEIGHT DECREASED [None]
